FAERS Safety Report 5278149-3 (Version None)
Quarter: 2007Q1

REPORT INFORMATION
  Report Type: 
  Country: None (occurrence: None)
  Receive Date: 20061213
  Receipt Date: 20060322
  Transmission Date: 20070707
  Serious: Yes (Other)
  Sender: FDA-Public Use
  Company Number: 2006UW05021

PATIENT
  Age: 45 Year
  Sex: Female

DRUGS (2)
  1. SEROQUEL [Suspect]
     Dosage: 600 MG QD PO
     Route: 048
  2. DEPAKOTE [Concomitant]

REACTIONS (4)
  - ACCIDENTAL OVERDOSE [None]
  - AKATHISIA [None]
  - DYSTONIA [None]
  - MEDICATION ERROR [None]
